FAERS Safety Report 19808626 (Version 4)
Quarter: 2022Q1

REPORT INFORMATION
  Report Type: Report from Study
  Country: US (occurrence: US)
  Receive Date: 20210908
  Receipt Date: 20220322
  Transmission Date: 20220423
  Serious: Yes (Hospitalization)
  Sender: FDA-Public Use
  Company Number: US-TAKEDA-2021TUS049824

PATIENT
  Age: 74 Year
  Sex: Female
  Weight: 84 kg

DRUGS (29)
  1. .ALPHA.1-PROTEINASE INHIBITOR HUMAN [Suspect]
     Active Substance: .ALPHA.1-PROTEINASE INHIBITOR HUMAN
     Indication: Alpha-1 antitrypsin deficiency
     Dosage: 60 MILLIGRAM/KILOGRAM, 1/WEEK
     Route: 042
     Dates: start: 20210720
  2. .ALPHA.1-PROTEINASE INHIBITOR HUMAN [Suspect]
     Active Substance: .ALPHA.1-PROTEINASE INHIBITOR HUMAN
     Indication: Alpha-1 antitrypsin deficiency
     Dosage: 60 MILLIGRAM/KILOGRAM, 1/WEEK
     Route: 042
     Dates: start: 20210720
  3. .ALPHA.1-PROTEINASE INHIBITOR HUMAN [Suspect]
     Active Substance: .ALPHA.1-PROTEINASE INHIBITOR HUMAN
     Dosage: 5200 MILLIGRAM, 1/WEEK
     Route: 042
     Dates: start: 20210621
  4. .ALPHA.1-PROTEINASE INHIBITOR HUMAN [Suspect]
     Active Substance: .ALPHA.1-PROTEINASE INHIBITOR HUMAN
     Dosage: 5200 MILLIGRAM, 1/WEEK
     Route: 042
     Dates: start: 20210621
  5. ARIPIPRAZOLE [Concomitant]
     Active Substance: ARIPIPRAZOLE
  6. DIPHENHYDRAMINE [Concomitant]
     Active Substance: DIPHENHYDRAMINE
  7. SODIUM CHLORIDE [Concomitant]
     Active Substance: SODIUM CHLORIDE
  8. EPINEPHRINE [Concomitant]
     Active Substance: EPINEPHRINE
  9. VITAMIN D3 [Concomitant]
     Active Substance: CHOLECALCIFEROL
  10. PROAIR HFA [Concomitant]
     Active Substance: ALBUTEROL SULFATE
  11. PNEUMOVAX 23 [Concomitant]
     Active Substance: PNEUMOCOCCAL VACCINE, POLYVALENT 23
  12. FLUAD NOS [Concomitant]
     Active Substance: INFLUENZA VIRUS VACCINE
  13. QUADEL [Concomitant]
  14. TYLENOL [Concomitant]
     Active Substance: ACETAMINOPHEN
  15. LISINOPRIL [Concomitant]
     Active Substance: LISINOPRIL
  16. ALBUTEROL SULFATE\IPRATROPIUM BROMIDE [Concomitant]
     Active Substance: ALBUTEROL SULFATE\IPRATROPIUM BROMIDE
  17. LEXAPRO [Concomitant]
     Active Substance: ESCITALOPRAM OXALATE
  18. ZYRTEC [Concomitant]
     Active Substance: CETIRIZINE HYDROCHLORIDE
     Dosage: UNK
  19. NIACIN [Concomitant]
     Active Substance: NIACIN
     Dosage: UNK
  20. METOPROLOL SUCCINATE [Concomitant]
     Active Substance: METOPROLOL SUCCINATE
  21. FISH OIL [Concomitant]
     Active Substance: FISH OIL
  22. KETOTIFEN FUMARATE [Concomitant]
     Active Substance: KETOTIFEN FUMARATE
  23. GABAPENTIN [Concomitant]
     Active Substance: GABAPENTIN
  24. SYMBICORT [Concomitant]
     Active Substance: BUDESONIDE\FORMOTEROL FUMARATE DIHYDRATE
  25. MEPRAZOLE [Concomitant]
  26. ASPIRIN [Concomitant]
     Active Substance: ASPIRIN
  27. HYDROCODONE [Concomitant]
     Active Substance: HYDROCODONE
     Route: 065
  28. ACETAMINOPHEN [Concomitant]
     Active Substance: ACETAMINOPHEN
     Route: 065
  29. OMEPRAZOLE [Concomitant]
     Active Substance: OMEPRAZOLE
     Route: 065

REACTIONS (10)
  - Arthropathy [Unknown]
  - Weight increased [Unknown]
  - Depression [Unknown]
  - Sinusitis [Unknown]
  - Pain [Unknown]
  - Cough [Unknown]
  - Diarrhoea [Recovering/Resolving]
  - Malaise [Unknown]
  - Dyspnoea [Unknown]
  - Vertigo [Unknown]

NARRATIVE: CASE EVENT DATE: 20220130
